FAERS Safety Report 24046795 (Version 1)
Quarter: 2024Q3

REPORT INFORMATION
  Report Type: Spontaneous
  Country: US (occurrence: US)
  Receive Date: 20240703
  Receipt Date: 20240703
  Transmission Date: 20241017
  Serious: No
  Sender: FRESENIUS KABI
  Company Number: US-FreseniusKabi-FK202409731

PATIENT
  Age: 55 Year
  Sex: Female
  Weight: 52.16 kg

DRUGS (3)
  1. MAGNESIUM SULFATE [Suspect]
     Active Substance: MAGNESIUM SULFATE\MAGNESIUM SULFATE HEPTAHYDRATE
     Indication: Product used for unknown indication
     Dosage: GLUTEAL (UNSPECIFIED SIDE) INJECTION
  2. progesterone 400mg pellet [Concomitant]
     Indication: Product used for unknown indication
  3. testosterone/estradiol [Concomitant]
     Indication: Product used for unknown indication

REACTIONS (7)
  - Burning sensation [Unknown]
  - Injection site bruising [Unknown]
  - Pain [Unknown]
  - Skin mass [Not Recovered/Not Resolved]
  - Injection site scab [Unknown]
  - Injection site erythema [Unknown]
  - Pain in extremity [Unknown]
